FAERS Safety Report 13913730 (Version 5)
Quarter: 2020Q1

REPORT INFORMATION
  Report Type: Spontaneous
  Country: DE (occurrence: DE)
  Receive Date: 20170829
  Receipt Date: 20200206
  Transmission Date: 20200409
  Serious: Yes (Disabling, Congenital Anomaly, Other)
  Sender: FDA-Public Use
  Company Number: DE-MYLANLABS-2017M1052435

PATIENT
  Age: 9 Month
  Sex: Female
  Weight: 2.3 kg

DRUGS (5)
  1. BELLA HEXAL [Concomitant]
     Active Substance: CYPROTERONE ACETATE\ETHINYL ESTRADIOL
     Indication: CONTRACEPTION
     Dosage: MATERNAL DOSE: 2 MG, QD
     Route: 064
     Dates: start: 20160109, end: 20160204
  2. OSPOLOT [Suspect]
     Active Substance: SULTHIAME
     Indication: EPILEPSY
     Dosage: 150 MG, 2X/DAY (BID) (300 MG MILLIGRAM(S) EVERY DAY)
     Route: 064
     Dates: start: 20160109, end: 20161003
  3. LEVETIRACETAM. [Suspect]
     Active Substance: LEVETIRACETAM
     Indication: EPILEPSY
     Dosage: 2250 [MG/D ]/ INCREASED DOSE FROM GESTATIONAL WEEK 4 5/7.
     Route: 064
     Dates: start: 20160109, end: 20161003
  4. LEVETIRACETAM. [Suspect]
     Active Substance: LEVETIRACETAM
     Dosage: 1250 MG DAILY
     Route: 064
     Dates: start: 20160211, end: 20161003
  5. LEVETIRACETAM. [Suspect]
     Active Substance: LEVETIRACETAM
     Dosage: 2000 MG, EVERY DAY
     Route: 064
     Dates: start: 20160109, end: 20160210

REACTIONS (4)
  - Congenital cyst [Not Recovered/Not Resolved]
  - Foetal exposure during pregnancy [Recovered/Resolved]
  - Low birth weight baby [Unknown]
  - Small for dates baby [Unknown]

NARRATIVE: CASE EVENT DATE: 201601
